FAERS Safety Report 5317482-3 (Version None)
Quarter: 2007Q2

REPORT INFORMATION
  Report Type: 
  Country: None (occurrence: None)
  Receive Date: 20070507
  Receipt Date: 20070502
  Transmission Date: 20071010
  Serious: Yes (Other)
  Sender: FDA-Public Use
  Company Number: HQWYE951702MAY07

PATIENT
  Age: 76 Year
  Sex: Male

DRUGS (1)
  1. AMIODARONE HCL [Suspect]
     Indication: CARDIAC DISORDER
     Dosage: DOSE UNKNOWN
     Route: 065

REACTIONS (1)
  - KERATOPATHY [None]
